FAERS Safety Report 19759923 (Version 2)
Quarter: 2021Q4

REPORT INFORMATION
  Report Type: Spontaneous
  Country: US (occurrence: US)
  Receive Date: 20210830
  Receipt Date: 20211115
  Transmission Date: 20220303
  Serious: No
  Sender: FDA-Public Use
  Company Number: US-CELGENE-USA-20210806855

PATIENT
  Sex: Male

DRUGS (2)
  1. REVLIMID [Suspect]
     Active Substance: LENALIDOMIDE
     Indication: Plasma cell myeloma
     Dosage: 25 MILLIGRAM
     Route: 048
     Dates: start: 202107
  2. REVLIMID [Suspect]
     Active Substance: LENALIDOMIDE
     Indication: Neoplasm

REACTIONS (10)
  - Swelling [Unknown]
  - Peripheral swelling [Unknown]
  - Fatigue [Unknown]
  - Constipation [Unknown]
  - Paraesthesia [Unknown]
  - Asthenia [Unknown]
  - Muscle spasms [Unknown]
  - Nausea [Unknown]
  - Sleep disorder [Unknown]
  - Diarrhoea [Unknown]

NARRATIVE: CASE EVENT DATE: 20210101
